FAERS Safety Report 25934915 (Version 2)
Quarter: 2025Q4

REPORT INFORMATION
  Report Type: Spontaneous
  Country: EU (occurrence: EU)
  Receive Date: 20251017
  Receipt Date: 20251104
  Transmission Date: 20260118
  Serious: Yes (Hospitalization, Other)
  Sender: ACCORD
  Company Number: EU-Accord-508998

PATIENT
  Age: 30 Year
  Sex: Female

DRUGS (1)
  1. TOPIRAMATE [Suspect]
     Active Substance: TOPIRAMATE
     Indication: Migraine prophylaxis

REACTIONS (2)
  - Angle closure glaucoma [Recovered/Resolved]
  - Choroidal effusion [Recovered/Resolved]
